FAERS Safety Report 24729859 (Version 1)
Quarter: 2024Q4

REPORT INFORMATION
  Report Type: Spontaneous
  Country: US (occurrence: US)
  Receive Date: 20241213
  Receipt Date: 20241213
  Transmission Date: 20250115
  Serious: No
  Sender: ALEXION PHARMACEUTICALS
  Company Number: US-AstraZeneca-CH-00721411A

PATIENT

DRUGS (4)
  1. KOSELUGO [Suspect]
     Active Substance: SELUMETINIB
  2. KOSELUGO [Suspect]
     Active Substance: SELUMETINIB
     Route: 048
  3. KOSELUGO [Suspect]
     Active Substance: SELUMETINIB
  4. KOSELUGO [Suspect]
     Active Substance: SELUMETINIB
     Route: 048

REACTIONS (2)
  - Paronychia [Unknown]
  - Off label use [Unknown]
